FAERS Safety Report 13546758 (Version 1)
Quarter: 2017Q2

REPORT INFORMATION
  Report Type: Spontaneous
  Country: DE (occurrence: DE)
  Receive Date: 20170515
  Receipt Date: 20170515
  Transmission Date: 20170830
  Serious: Yes (Hospitalization)
  Sender: FDA-Public Use
  Company Number: DE-TEVA-766306GER

PATIENT
  Sex: Male

DRUGS (1)
  1. CISPLATIN-TEVA 1 MG/ML KONZENTRAT ZUR HERSTELLUNG EINER INFUSIONSL?SUN [Suspect]
     Active Substance: CISPLATIN
     Indication: NEOPLASM MALIGNANT
     Route: 042
     Dates: start: 2017

REACTIONS (3)
  - Hepatic failure [Not Recovered/Not Resolved]
  - Deafness [Not Recovered/Not Resolved]
  - Renal failure [Not Recovered/Not Resolved]

NARRATIVE: CASE EVENT DATE: 2017
